FAERS Safety Report 25595670 (Version 2)
Quarter: 2025Q4

REPORT INFORMATION
  Report Type: Spontaneous
  Country: JP (occurrence: JP)
  Receive Date: 20250723
  Receipt Date: 20251024
  Transmission Date: 20260117
  Serious: Yes (Death, Life-Threatening, Other)
  Sender: CHEPLAPHARM
  Company Number: JP-CP_KK-2025JP004225

PATIENT
  Age: 2 Decade
  Sex: Female

DRUGS (6)
  1. OLANZAPINE [Suspect]
     Active Substance: OLANZAPINE
     Indication: Product used for unknown indication
     Dosage: UNK
  2. QUETIAPINE [Suspect]
     Active Substance: QUETIAPINE
     Indication: Product used for unknown indication
     Dosage: UNK
  3. ACETAMINOPHEN [Suspect]
     Active Substance: ACETAMINOPHEN
     Indication: Product used for unknown indication
     Dosage: UNK
  4. MIRTAZAPINE [Suspect]
     Active Substance: MIRTAZAPINE
     Indication: Product used for unknown indication
     Dosage: UNK
  5. CARBAMAZEPINE [Suspect]
     Active Substance: CARBAMAZEPINE
     Indication: Product used for unknown indication
     Dosage: UNK
  6. ETIZOLAM [Suspect]
     Active Substance: ETIZOLAM
     Indication: Product used for unknown indication
     Dosage: UNK

REACTIONS (5)
  - Obstructive airways disorder [Fatal]
  - Asphyxia [Fatal]
  - Postmortem blood drug level increased [Fatal]
  - Altered state of consciousness [Not Recovered/Not Resolved]
  - Hypotonia [Not Recovered/Not Resolved]
